FAERS Safety Report 4424135-2 (Version None)
Quarter: 2004Q3

REPORT INFORMATION
  Report Type: 
  Country: None (occurrence: None)
  Receive Date: 20040812
  Receipt Date: 20040809
  Transmission Date: 20050211
  Serious: Yes (Hospitalization)
  Sender: FDA-Public Use
  Company Number: US-JNJFOC-20040204051

PATIENT
  Sex: Female

DRUGS (7)
  1. PANCREASE [Suspect]
  2. PANCREASE [Suspect]
  3. B12 [Concomitant]
  4. REGLAN [Concomitant]
  5. PROTONIX [Concomitant]
  6. ZOLOFT [Concomitant]
  7. OGEN [Concomitant]

REACTIONS (11)
  - ABDOMINAL PAIN UPPER [None]
  - ALCOHOL USE [None]
  - BACK PAIN [None]
  - COLONIC POLYP [None]
  - DEFICIENCY ANAEMIA [None]
  - DIVERTICULUM INTESTINAL HAEMORRHAGIC [None]
  - FALL [None]
  - HAEMORRHOIDS [None]
  - PANCREATIC PSEUDOCYST [None]
  - TREATMENT NONCOMPLIANCE [None]
  - VOMITING [None]
